FAERS Safety Report 10556621 (Version 1)
Quarter: 2014Q4

REPORT INFORMATION
  Report Type: Spontaneous
  Country: US (occurrence: US)
  Receive Date: 20141031
  Receipt Date: 20141031
  Transmission Date: 20150529
  Serious: No
  Sender: FDA-Public Use
  Company Number: US-ELI_LILLY_AND_COMPANY-US201410009740

PATIENT
  Sex: Female

DRUGS (4)
  1. HUMALOG [Suspect]
     Active Substance: INSULIN LISPRO
     Indication: TYPE 2 DIABETES MELLITUS
     Dosage: 12 U, TID
     Route: 065
     Dates: start: 1992
  2. HUMALOG [Suspect]
     Active Substance: INSULIN LISPRO
     Dosage: 20` U, PRN
     Route: 065
     Dates: start: 1992
  3. LANTUS [Concomitant]
     Active Substance: INSULIN GLARGINE
     Route: 065
  4. HUMALOG [Suspect]
     Active Substance: INSULIN LISPRO
     Dosage: 5 U, OTHER
     Route: 065
     Dates: start: 1992

REACTIONS (1)
  - Blood glucose increased [Unknown]
